FAERS Safety Report 20332519 (Version 1)
Quarter: 2022Q1

REPORT INFORMATION
  Report Type: Spontaneous
  Country: US (occurrence: None)
  Receive Date: 20220113
  Receipt Date: 20220113
  Transmission Date: 20220423
  Serious: Yes (Death)
  Sender: FDA-Public Use
  Company Number: None

PATIENT
  Age: 66 Year
  Sex: Male

DRUGS (2)
  1. AUSTEDO [Suspect]
     Active Substance: DEUTETRABENAZINE
     Dosage: FREQUENCY : TWICE A DAY;?
     Route: 048
     Dates: start: 20201001, end: 20210818
  2. INGREZZA [Suspect]
     Active Substance: VALBENAZINE
     Dates: start: 20211115, end: 20220111

REACTIONS (1)
  - Death [None]

NARRATIVE: CASE EVENT DATE: 20220111
